FAERS Safety Report 21404765 (Version 2)
Quarter: 2022Q4

REPORT INFORMATION
  Report Type: Report from Study
  Country: PT (occurrence: PT)
  Receive Date: 20221003
  Receipt Date: 20221022
  Transmission Date: 20230113
  Serious: Yes (Hospitalization)
  Sender: FDA-Public Use
  Company Number: PT-ABBVIE-4135395

PATIENT
  Age: 76 Year
  Sex: Female

DRUGS (9)
  1. CARBIDOPA\LEVODOPA [Suspect]
     Active Substance: CARBIDOPA\LEVODOPA
     Indication: Parkinson^s disease
     Dosage: 20 MG PLUS 5 MG (VIA PEG)?FREQUENCY TEXT: MORN:13.5CC;MAINT:5.7CC/H;EXTRA:3CC
     Route: 050
     Dates: start: 20220920
  2. CARBIDOPA\LEVODOPA [Suspect]
     Active Substance: CARBIDOPA\LEVODOPA
     Dosage: 20 MG PLUS 5 MG (VIA PEG),?FREQUENCY TEXT: MORN:13.5CC;MAINT:5.7CC/H;EXTRA:3CC?LAST ADMIN DATE: J...
     Route: 050
     Dates: start: 20220613
  3. CARBIDOPA\LEVODOPA [Suspect]
     Active Substance: CARBIDOPA\LEVODOPA
     Dosage: 20 MG PLUS 5 MG?FREQUENCY TEXT: MOR:7CC(PLUS5CC1STDAY);MAIN:3.3CC/H;EXT:1CC
     Route: 050
     Dates: start: 2022, end: 202208
  4. CARBIDOPA\LEVODOPA [Suspect]
     Active Substance: CARBIDOPA\LEVODOPA
     Dosage: 20 MG PLUS 5 MG (VIA PEG)?FREQUENCY TEXT: MORN:13.5CC;MAINT:5.7CC/H;EXTRA:3CC
     Route: 050
     Dates: start: 202208, end: 202209
  5. FOLIC ACID [Concomitant]
     Active Substance: FOLIC ACID
     Indication: Product used for unknown indication
     Dosage: 1 TABLET?FORM STRENGTH: 5 MILLIGRAM?FREQUENCY TEXT: AT 1PM AFTER DUODOPA
     Route: 048
  6. BENSERAZIDE HYDROCHLORIDE\LEVODOPA [Concomitant]
     Active Substance: BENSERAZIDE HYDROCHLORIDE\LEVODOPA
     Indication: Parkinson^s disease
     Dosage: 1 TABLET?FREQUENCY TEXT: AT BEDTIME AFTER DUODOPA
     Route: 048
  7. CYANOCOBALAMIN [Concomitant]
     Active Substance: CYANOCOBALAMIN
     Indication: Product used for unknown indication
     Dosage: 1 TABLET?FORM STRENGTH: 1 MILLIGRAM?FREQUENCY TEXT: AT 1PM AFTER DUODOPA
     Route: 048
  8. QUETIAPINE [Concomitant]
     Active Substance: QUETIAPINE
     Indication: Product used for unknown indication
     Dosage: 1 TABLET?FORM STRENGTH: 25 MILLIGRAM?FREQUENCY TEXT: AT 7PM BEFORE DUODOPA
     Route: 048
  9. CLONAZEPAM [Concomitant]
     Active Substance: CLONAZEPAM
     Indication: Product used for unknown indication
     Dosage: 1 TABLET?FORM STRENGTH: 0.5 MILLIGRAM? FREQUENCY TEXT: AT BEDTIME, BEFORE DUODOPA
     Route: 048

REACTIONS (3)
  - Urinary tract infection [Recovered/Resolved]
  - On and off phenomenon [Recovered/Resolved]
  - Incorrect product administration duration [Unknown]

NARRATIVE: CASE EVENT DATE: 20220101
